FAERS Safety Report 21277387 (Version 1)
Quarter: 2022Q3

REPORT INFORMATION
  Report Type: Spontaneous
  Country: US (occurrence: US)
  Receive Date: 20220831
  Receipt Date: 20220831
  Transmission Date: 20221027
  Serious: No
  Sender: FDA-Public Use
  Company Number: US-ABBVIE-22K-163-4303002-00

PATIENT
  Sex: Female
  Weight: 113.50 kg

DRUGS (18)
  1. HUMIRA [Suspect]
     Active Substance: ADALIMUMAB
     Indication: Psoriatic arthropathy
     Route: 058
  2. MODERNA COVID-19 VACCINE [Concomitant]
     Active Substance: ELASOMERAN
     Indication: COVID-19 immunisation
     Route: 030
     Dates: start: 20210106, end: 20210106
  3. MODERNA COVID-19 VACCINE [Concomitant]
     Active Substance: ELASOMERAN
     Dosage: MODERNA
     Route: 030
     Dates: start: 20210202, end: 20210202
  4. MODERNA COVID-19 VACCINE [Concomitant]
     Active Substance: ELASOMERAN
     Dosage: MODERNA
     Route: 030
     Dates: start: 20220302, end: 20220302
  5. HYDROCODONE [Concomitant]
     Active Substance: HYDROCODONE
     Indication: Arthralgia
  6. ALLOPURINOL [Concomitant]
     Active Substance: ALLOPURINOL
     Indication: Gout
  7. VITAMIN B12 [Concomitant]
     Active Substance: CYANOCOBALAMIN
     Indication: Vitamin B12
  8. CALCIUM [Concomitant]
     Active Substance: CALCIUM
     Indication: Product used for unknown indication
  9. LOSARTAN [Concomitant]
     Active Substance: LOSARTAN
     Indication: Blood pressure measurement
  10. LEVOTHYROXINE [Concomitant]
     Active Substance: LEVOTHYROXINE
     Indication: Thyroid disorder
  11. PRAVASTATIN [Concomitant]
     Active Substance: PRAVASTATIN
     Indication: Blood cholesterol
  12. DULOXETINE [Concomitant]
     Active Substance: DULOXETINE
     Indication: Depression
  13. HYDROCHLOROTHIAZIDE [Concomitant]
     Active Substance: HYDROCHLOROTHIAZIDE
     Indication: Cardiac disorder
  14. TIADYLT ER [Concomitant]
     Active Substance: DILTIAZEM HYDROCHLORIDE
     Indication: Blood pressure measurement
  15. WARFARIN [Concomitant]
     Active Substance: WARFARIN
     Indication: Anticoagulant therapy
  16. IRON [Concomitant]
     Active Substance: IRON
     Indication: Anaemia
  17. PRILOSEC [Concomitant]
     Active Substance: OMEPRAZOLE MAGNESIUM
     Indication: Gastrooesophageal reflux disease
  18. TIZANIDINE [Concomitant]
     Active Substance: TIZANIDINE
     Indication: Muscle relaxant therapy

REACTIONS (2)
  - Cardiac valve disease [Not Recovered/Not Resolved]
  - Atrial fibrillation [Not Recovered/Not Resolved]

NARRATIVE: CASE EVENT DATE: 20200101
